FAERS Safety Report 8762891 (Version 3)
Quarter: 2013Q1

REPORT INFORMATION
  Report Type: Spontaneous
  Country: FR (occurrence: None)
  Receive Date: 20120823
  Receipt Date: 20120910
  Transmission Date: 20140127
  Serious: Yes (Other)
  Sender: FDA-Public Use
  Company Number: 2012-3629

PATIENT
  Age: 42 Year
  Sex: Female

DRUGS (3)
  1. DYSPORT [Suspect]
     Indication: MUSCLE SPASTICITY
     Dosage: (1 IN 1 CYCLE(S))
     Route: 030
     Dates: start: 20120511, end: 20120511
  2. LIORESAL 10 (BACLOFEN) [Concomitant]
  3. DANTRIUM 25 (DANTROLENE SODIUM) [Concomitant]

REACTIONS (8)
  - Concomitant disease aggravated [None]
  - Fatigue [None]
  - Neurological decompensation [None]
  - Paraparesis [None]
  - Dysphagia [None]
  - Mastication disorder [None]
  - Dysarthria [None]
  - Activities of daily living impaired [None]
